FAERS Safety Report 21613848 (Version 2)
Quarter: 2022Q4

REPORT INFORMATION
  Report Type: Report from Study
  Country: DE (occurrence: DE)
  Receive Date: 20221118
  Receipt Date: 20221123
  Transmission Date: 20230112
  Serious: Yes (Hospitalization)
  Sender: FDA-Public Use
  Company Number: DE-PFM-2022-07298

PATIENT

DRUGS (5)
  1. NERATINIB [Suspect]
     Active Substance: NERATINIB
     Indication: Breast cancer
     Dosage: 120 MG PER DAY
     Route: 048
     Dates: start: 20210405
  2. NERATINIB [Suspect]
     Active Substance: NERATINIB
     Dosage: 240 MG PER DAY
     Route: 048
     Dates: start: 20210807
  3. LOPERAMIDE [Concomitant]
     Active Substance: LOPERAMIDE
     Indication: Prophylaxis against diarrhoea
     Dosage: 8 MG, DAILY
     Route: 048
     Dates: start: 20210405, end: 20210521
  4. LOPERAMIDE [Concomitant]
     Active Substance: LOPERAMIDE
     Dosage: 2 MG, DAILY
     Route: 048
     Dates: start: 20210522, end: 202203
  5. BISOPROLOL [Concomitant]
     Active Substance: BISOPROLOL
     Indication: Hypertension
     Dosage: 2.5 MG, DAILY
     Route: 048
     Dates: start: 202106

REACTIONS (6)
  - Aneurysm [Recovered/Resolved]
  - Skin toxicity [Recovered/Resolved]
  - Mucosal toxicity [Recovered/Resolved]
  - Diarrhoea [Recovered/Resolved]
  - Underdose [Unknown]
  - Off label use [Unknown]

NARRATIVE: CASE EVENT DATE: 20210405
